FAERS Safety Report 7364153-8 (Version None)
Quarter: 2011Q1

REPORT INFORMATION
  Report Type: 
  Country: None (occurrence: None)
  Receive Date: 20110321
  Receipt Date: 20100927
  Transmission Date: 20110831
  Serious: Yes (Other)
  Sender: FDA-Public Use
  Company Number: US-BAYER-200936819NA

PATIENT
  Sex: Female
  Weight: 65 kg

DRUGS (4)
  1. SINEQUAN [Concomitant]
     Indication: PRODUCT USED FOR UNKNOWN INDICATION
  2. YASMIN [Suspect]
     Indication: CONTRACEPTION
     Route: 048
     Dates: start: 20080401, end: 20090901
  3. ACIPHEX [Concomitant]
     Indication: PRODUCT USED FOR UNKNOWN INDICATION
  4. YAZ [Suspect]
     Indication: CONTRACEPTION
     Route: 048
     Dates: start: 20080501, end: 20090901

REACTIONS (18)
  - GASTRITIS [None]
  - NAUSEA [None]
  - CHILLS [None]
  - OESOPHAGITIS [None]
  - GALLBLADDER DISORDER [None]
  - ABDOMINAL PAIN UPPER [None]
  - SYNCOPE [None]
  - PYREXIA [None]
  - DIZZINESS [None]
  - PALPITATIONS [None]
  - CONSTIPATION [None]
  - CHEST PAIN [None]
  - DYSPNOEA [None]
  - DYSPEPSIA [None]
  - DIARRHOEA [None]
  - HIATUS HERNIA [None]
  - VOMITING [None]
  - ABDOMINAL DISTENSION [None]
